FAERS Safety Report 14971326 (Version 3)
Quarter: 2018Q3

REPORT INFORMATION
  Report Type: Spontaneous
  Country: US (occurrence: US)
  Receive Date: 20180604
  Receipt Date: 20180802
  Transmission Date: 20181010
  Serious: No
  Sender: FDA-Public Use
  Company Number: US-ACTELION-A-NJ2018-172584

PATIENT
  Age: 83 Year
  Sex: Male

DRUGS (1)
  1. VALCHLOR [Suspect]
     Active Substance: MECHLORETHAMINE
     Indication: MYCOSIS FUNGOIDES
     Dosage: THIN FILM TO AFFECTED SKIN, QD
     Route: 061
     Dates: start: 20180425

REACTIONS (6)
  - Skin hypertrophy [Unknown]
  - Skin erosion [Unknown]
  - Skin discolouration [Unknown]
  - Drug dose omission [Unknown]
  - Skin reaction [Unknown]
  - Skin hyperpigmentation [Unknown]
